FAERS Safety Report 5422529-X (Version None)
Quarter: 2007Q3

REPORT INFORMATION
  Report Type: 
  Country: None (occurrence: None)
  Receive Date: 20070822
  Receipt Date: 20070815
  Transmission Date: 20080115
  Serious: Yes (Life-Threatening, Hospitalization)
  Sender: FDA-Public Use
  Company Number: US-SANOFI-SYNTHELABO-A03200705093

PATIENT
  Sex: Female

DRUGS (6)
  1. ARANESP [Concomitant]
     Dosage: UNK
     Route: 065
  2. PROTONIX [Concomitant]
     Dosage: UNK
     Route: 065
  3. AMIODARONE HCL [Concomitant]
     Dosage: UNK
     Route: 065
  4. ASPIRIN [Concomitant]
     Route: 065
  5. PLAVIX [Suspect]
     Route: 048
     Dates: start: 20060901, end: 20070723
  6. PLAVIX [Suspect]
     Route: 048
     Dates: start: 20060901, end: 20070723

REACTIONS (3)
  - INTESTINAL STRANGULATION [None]
  - PLATELET COUNT DECREASED [None]
  - SMALL INTESTINAL OBSTRUCTION [None]
